FAERS Safety Report 20876165 (Version 1)
Quarter: 2022Q2

REPORT INFORMATION
  Report Type: Spontaneous
  Country: US (occurrence: US)
  Receive Date: 20220526
  Receipt Date: 20220526
  Transmission Date: 20220721
  Serious: No
  Sender: FDA-Public Use
  Company Number: US-NOVEN PHARMACEUTICALS, INC.-2021-NOV-US003882

PATIENT
  Sex: Male
  Weight: 61.23 kg

DRUGS (2)
  1. DAYTRANA [Suspect]
     Active Substance: METHYLPHENIDATE
     Indication: Attention deficit hyperactivity disorder
     Dosage: 20MG/9HR, UNK
     Route: 062
     Dates: start: 20211212
  2. DAYTRANA [Suspect]
     Active Substance: METHYLPHENIDATE
     Dosage: 30MG/9HR, UNK
     Route: 062
     Dates: start: 2011

REACTIONS (5)
  - Rash [Unknown]
  - Application site rash [Not Recovered/Not Resolved]
  - Swelling [Not Recovered/Not Resolved]
  - Device use issue [Recovered/Resolved]
  - Off label use [Not Recovered/Not Resolved]

NARRATIVE: CASE EVENT DATE: 20110101
